FAERS Safety Report 5163722-3 (Version None)
Quarter: 2006Q4

REPORT INFORMATION
  Report Type: 
  Country: None (occurrence: None)
  Receive Date: 20061204
  Receipt Date: 20061127
  Transmission Date: 20070319
  Serious: Yes (Life-Threatening)
  Sender: FDA-Public Use
  Company Number: FR-GLAXOSMITHKLINE-B0448053A

PATIENT
  Age: 57 Year
  Sex: Male

DRUGS (6)
  1. AUGMENTIN '125' [Suspect]
     Dosage: 1G TWICE PER DAY
     Route: 048
     Dates: start: 20060513, end: 20060513
  2. RHINADVIL [Concomitant]
     Route: 065
     Dates: start: 20060513
  3. EFFERALGAN [Concomitant]
     Route: 065
     Dates: start: 20060513
  4. HELICIDINE [Concomitant]
     Route: 065
     Dates: start: 20060513
  5. TOPLEXIL [Concomitant]
     Route: 065
     Dates: start: 20060513
  6. CELESTONE [Concomitant]
     Route: 065
     Dates: start: 20060513

REACTIONS (5)
  - ABDOMINAL PAIN UPPER [None]
  - ANAPHYLACTIC SHOCK [None]
  - BLOOD PRESSURE DECREASED [None]
  - PAINFUL RESPIRATION [None]
  - PRURITUS GENERALISED [None]
